FAERS Safety Report 11604817 (Version 7)
Quarter: 2016Q4

REPORT INFORMATION
  Report Type: Report from Study
  Country: DE (occurrence: DE)
  Receive Date: 20151007
  Receipt Date: 20161130
  Transmission Date: 20170206
  Serious: Yes (Hospitalization)
  Sender: FDA-Public Use
  Company Number: DE-SA-2015SA008320

PATIENT
  Age: 23 Year
  Sex: Female
  Weight: 62 kg

DRUGS (7)
  1. FEMIBION 2 [Concomitant]
     Dosage: 200 MCG TABS
     Route: 048
     Dates: start: 20150316
  2. CETIRIZINE [Concomitant]
     Active Substance: CETIRIZINE HYDROCHLORIDE
     Indication: HYPERSENSITIVITY
     Dosage: DOSE: 10 (UNITS NOT GIVEN)
     Route: 048
     Dates: start: 20141103, end: 20141107
  3. LEMTRADA [Suspect]
     Active Substance: ALEMTUZUMAB
     Indication: MULTIPLE SCLEROSIS
     Route: 041
     Dates: start: 20141103, end: 20141107
  4. ACICLO BASICS [Concomitant]
     Indication: PROPHYLAXIS
     Dates: start: 20141102, end: 20141202
  5. URBASON [Concomitant]
     Active Substance: METHYLPREDNISOLONE
     Indication: MULTIPLE SCLEROSIS
     Route: 042
     Dates: start: 20141103, end: 20141107
  6. FEMIBION PREGNANCY 1 [Concomitant]
     Dosage: 400 MCG TABS
     Route: 048
     Dates: start: 20150119, end: 20150315
  7. PARACETAMOL [Concomitant]
     Active Substance: ACETAMINOPHEN
     Indication: PYREXIA
     Route: 048
     Dates: start: 20141103, end: 20141107

REACTIONS (4)
  - Basedow^s disease [Not Recovered/Not Resolved]
  - Caesarean section [Recovered/Resolved]
  - Blood thyroid stimulating hormone increased [Recovering/Resolving]
  - Maternal exposure before pregnancy [Unknown]

NARRATIVE: CASE EVENT DATE: 20150914
